FAERS Safety Report 17654910 (Version 1)
Quarter: 2020Q2

REPORT INFORMATION
  Report Type: Spontaneous
  Country: CA (occurrence: CA)
  Receive Date: 20200410
  Receipt Date: 20200410
  Transmission Date: 20200713
  Serious: Yes (Other)
  Sender: FDA-Public Use
  Company Number: CA-DRREDDYS-USA/CAN/20/0121706

PATIENT
  Age: 52 Year
  Sex: Female
  Weight: 59 kg

DRUGS (9)
  1. PROGESTERONE CAPSULES [Suspect]
     Active Substance: PROGESTERONE
     Indication: VAGINAL HAEMORRHAGE
     Route: 048
  2. PROGESTERONE CAPSULES [Suspect]
     Active Substance: PROGESTERONE
     Indication: VULVOVAGINAL PAIN
     Route: 048
  3. PREMARIN [Suspect]
     Active Substance: ESTROGENS, CONJUGATED
     Indication: VULVOVAGINAL PAIN
     Route: 048
  4. PROGESTERONE CAPSULES [Suspect]
     Active Substance: PROGESTERONE
     Indication: ANXIETY DISORDER
  5. PREMARIN [Suspect]
     Active Substance: ESTROGENS, CONJUGATED
     Indication: HAEMORRHAGE
  6. PROGESTERONE CAPSULES [Suspect]
     Active Substance: PROGESTERONE
     Indication: MENSTRUATION IRREGULAR
  7. PROGESTERONE CAPSULES [Suspect]
     Active Substance: PROGESTERONE
     Indication: MENORRHAGIA
  8. PROGESTERONE CAPSULES [Suspect]
     Active Substance: PROGESTERONE
     Indication: ACNE
  9. PROGESTERONE CAPSULES [Suspect]
     Active Substance: PROGESTERONE
     Indication: PROGESTERONE DECREASED

REACTIONS (5)
  - Menorrhagia [Recovered/Resolved]
  - Nasopharyngitis [Recovered/Resolved]
  - Condition aggravated [Recovered/Resolved]
  - Treatment noncompliance [Recovered/Resolved]
  - Product use in unapproved indication [Recovered/Resolved]
